FAERS Safety Report 6273868-4 (Version None)
Quarter: 2009Q3

REPORT INFORMATION
  Report Type: 
  Country: None (occurrence: None)
  Receive Date: 20090716
  Receipt Date: 20090709
  Transmission Date: 20100115
  Serious: Yes (Disabling)
  Sender: FDA-Public Use
  Company Number: 2008AG1909

PATIENT
  Age: 67 Year
  Sex: Male

DRUGS (3)
  1. SIMVASTATIN [Suspect]
     Indication: ACUTE MYOCARDIAL INFARCTION
     Dosage: ORAL
     Route: 048
     Dates: start: 20050415, end: 20080801
  2. HJJERTEMAGNYL (ACETYLSALICYLIC ACID) [Concomitant]
  3. IMDUR [Concomitant]

REACTIONS (3)
  - ASTHENIA [None]
  - GAIT DISTURBANCE [None]
  - MYALGIA [None]
